FAERS Safety Report 21259726 (Version 1)
Quarter: 2022Q3

REPORT INFORMATION
  Report Type: Spontaneous
  Country: US (occurrence: US)
  Receive Date: 20220826
  Receipt Date: 20220826
  Transmission Date: 20221027
  Serious: No
  Sender: FDA-Public Use
  Company Number: US-PFIZER INC-PV202200049978

PATIENT
  Age: 79 Year
  Sex: Female

DRUGS (2)
  1. XELJANZ [Interacting]
     Active Substance: TOFACITINIB CITRATE
     Indication: Rheumatoid arthritis
     Dosage: UNK
  2. MYCOPHENOLIC ACID [Interacting]
     Active Substance: MYCOPHENOLIC ACID
     Indication: Rheumatoid lung
     Dosage: UNK

REACTIONS (1)
  - Drug interaction [Unknown]
